FAERS Safety Report 6589186-0 (Version None)
Quarter: 2010Q1

REPORT INFORMATION
  Report Type: 
  Country: None (occurrence: None)
  Receive Date: 20100218
  Receipt Date: 20100211
  Transmission Date: 20100710
  Serious: Yes (Hospitalization, Other)
  Sender: FDA-Public Use
  Company Number: US-ABBOTT-10P-163-0625847-00

PATIENT
  Age: 28 Year
  Sex: Male
  Weight: 74.91 kg

DRUGS (2)
  1. HUMIRA [Suspect]
     Indication: CROHN'S DISEASE
     Route: 058
     Dates: start: 20090401
  2. HUMIRA [Suspect]
     Route: 058
     Dates: start: 20090301, end: 20090401

REACTIONS (7)
  - ABDOMINAL PAIN UPPER [None]
  - ABSCESS [None]
  - DIZZINESS [None]
  - GASTRIC DISORDER [None]
  - GASTROINTESTINAL INFLAMMATION [None]
  - HYPERSENSITIVITY [None]
  - PYREXIA [None]
